FAERS Safety Report 26132798 (Version 1)
Quarter: 2025Q4

REPORT INFORMATION
  Report Type: Spontaneous
  Country: IL (occurrence: IL)
  Receive Date: 20251208
  Receipt Date: 20251208
  Transmission Date: 20260117
  Serious: Yes (Hospitalization)
  Sender: TEVA
  Company Number: IL-TEVA-VS-3399469

PATIENT
  Age: 78 Year
  Sex: Female

DRUGS (2)
  1. SIMVASTATIN [Suspect]
     Active Substance: SIMVASTATIN
     Indication: Product used for unknown indication
     Route: 065
  2. VERAPAMIL [Concomitant]
     Active Substance: VERAPAMIL HYDROCHLORIDE
     Indication: Product used for unknown indication
     Dosage: SR
     Route: 065

REACTIONS (2)
  - Rash pruritic [Unknown]
  - Low density lipoprotein abnormal [Unknown]

NARRATIVE: CASE EVENT DATE: 20250101
